FAERS Safety Report 25439539 (Version 1)
Quarter: 2025Q2

REPORT INFORMATION
  Report Type: Spontaneous
  Country: US (occurrence: US)
  Receive Date: 20250616
  Receipt Date: 20250616
  Transmission Date: 20250716
  Serious: Yes (Death, Other)
  Sender: AMGEN
  Company Number: US-AMGEN-USASP2025114075

PATIENT

DRUGS (2)
  1. EPOETIN ALFA [Suspect]
     Active Substance: ERYTHROPOIETIN
     Indication: Anaemia
     Dosage: 40000 UNIT, QWK (JULY 2001 TO DECEMBER 2003) (4-6 WEEKLY DOSES)
     Route: 058
  2. CISPLATIN [Concomitant]
     Active Substance: CISPLATIN
     Dosage: UNK, QWK
     Route: 065

REACTIONS (2)
  - Cervix carcinoma [Fatal]
  - Embolism [Unknown]
